FAERS Safety Report 7944608-5 (Version None)
Quarter: 2011Q4

REPORT INFORMATION
  Report Type: 
  Country: None (occurrence: None)
  Receive Date: 20111114
  Receipt Date: 20110822
  Transmission Date: 20120403
  Serious: No
  Sender: FDA-Public Use
  Company Number: 1000023069

PATIENT
  Age: 76 Year
  Sex: Female

DRUGS (3)
  1. SAVELLA [Suspect]
     Indication: FIBROMYALGIA
     Dosage: 50 MG (25 MG, 2 IN 1 D), ORAL
     Route: 048
     Dates: start: 20110814, end: 20110814
  2. SAVELLA [Suspect]
     Indication: FIBROMYALGIA
     Dosage: 12.5 MG (12.5 MG, 1 IN 1 D), ORAL;25 MG (12.5 MG,2 IN 1 D), ORAL
     Route: 048
     Dates: start: 20110812, end: 20110813
  3. SAVELLA [Suspect]
     Indication: FIBROMYALGIA
     Dosage: 12.5 MG (12.5 MG, 1 IN 1 D), ORAL;25 MG (12.5 MG,2 IN 1 D), ORAL
     Route: 048
     Dates: start: 20110811, end: 20110811

REACTIONS (11)
  - CHEST DISCOMFORT [None]
  - VISION BLURRED [None]
  - ERYTHEMA [None]
  - VOMITING [None]
  - HEADACHE [None]
  - INSOMNIA [None]
  - DIZZINESS [None]
  - HYPERHIDROSIS [None]
  - TREMOR [None]
  - DRY MOUTH [None]
  - HOT FLUSH [None]
